FAERS Safety Report 13120690 (Version 1)
Quarter: 2017Q1

REPORT INFORMATION
  Report Type: Report from Study
  Country: US (occurrence: US)
  Receive Date: 20170117
  Receipt Date: 20170117
  Transmission Date: 20170428
  Serious: Yes (Other)
  Sender: FDA-Public Use
  Company Number: US-ROCHE-1875480

PATIENT

DRUGS (2)
  1. I-131 TOSITUMOMAB [Concomitant]
     Indication: LYMPHOMA
  2. RITUXIMAB [Suspect]
     Active Substance: RITUXIMAB
     Indication: LYMPHOMA
     Route: 042

REACTIONS (9)
  - Dyspnoea [Unknown]
  - Anaphylactoid reaction [Unknown]
  - Pharyngeal oedema [Unknown]
  - Rash [Unknown]
  - Gastrointestinal pain [Unknown]
  - Stridor [Unknown]
  - Pyrexia [Unknown]
  - Chills [Unknown]
  - Hypotension [Unknown]
